FAERS Safety Report 17460493 (Version 1)
Quarter: 2020Q1

REPORT INFORMATION
  Report Type: Spontaneous
  Country: US (occurrence: US)
  Receive Date: 20200226
  Receipt Date: 20200226
  Transmission Date: 20200409
  Serious: No
  Sender: FDA-Public Use
  Company Number: US-PFIZER INC-2020085564

PATIENT
  Age: 84 Year
  Sex: Female

DRUGS (2)
  1. BOSUTINIB [Suspect]
     Active Substance: BOSUTINIB
     Indication: CHRONIC MYELOID LEUKAEMIA
     Dosage: 100 MG, UNK
  2. BOSUTINIB [Suspect]
     Active Substance: BOSUTINIB
     Dosage: 200 MG, DAILY

REACTIONS (4)
  - Decreased appetite [Unknown]
  - Oesophagitis [Unknown]
  - Diarrhoea [Unknown]
  - Weight decreased [Unknown]
